FAERS Safety Report 15754498 (Version 2)
Quarter: 2019Q1

REPORT INFORMATION
  Report Type: Spontaneous
  Country: US (occurrence: US)
  Receive Date: 20181224
  Receipt Date: 20190129
  Transmission Date: 20190417
  Serious: Yes (Other)
  Sender: FDA-Public Use
  Company Number: US-009507513-1812USA010055

PATIENT
  Age: 28 Year
  Sex: Female
  Weight: 102.04 kg

DRUGS (1)
  1. NEXPLANON [Suspect]
     Active Substance: ETONOGESTREL
     Indication: CONTRACEPTION
     Dosage: 1 ROD EVERY 3 YEARS, LEFT ARM
     Route: 059
     Dates: start: 20181018, end: 20190114

REACTIONS (6)
  - Device dislocation [Recovered/Resolved]
  - Device kink [Recovered/Resolved]
  - Medical device site discomfort [Not Recovered/Not Resolved]
  - Skin disorder [Unknown]
  - Implant site pain [Not Recovered/Not Resolved]
  - Weight decreased [Unknown]

NARRATIVE: CASE EVENT DATE: 201810
